FAERS Safety Report 14657419 (Version 1)
Quarter: 2018Q1

REPORT INFORMATION
  Report Type: Spontaneous
  Country: JP (occurrence: JP)
  Receive Date: 20180320
  Receipt Date: 20180320
  Transmission Date: 20180509
  Serious: No
  Sender: FDA-Public Use
  Company Number: JP-LUPIN PHARMACEUTICALS INC.-2017-07456

PATIENT
  Age: 8 Decade
  Sex: Female

DRUGS (3)
  1. SAWACILLIN [Suspect]
     Active Substance: AMOXICILLIN
     Indication: HELICOBACTER INFECTION
     Dosage: 750 MG, BID
     Route: 048
     Dates: start: 20130214
  2. OMEPRAZOLE 20MG TABLET [Suspect]
     Active Substance: OMEPRAZOLE
     Indication: HELICOBACTER INFECTION
     Dosage: 20 MG, BID
     Route: 048
     Dates: start: 20130214
  3. CLARITHROMYCIN. [Suspect]
     Active Substance: CLARITHROMYCIN
     Indication: HELICOBACTER INFECTION
     Dosage: 400 MG, BID
     Route: 048
     Dates: start: 20130214

REACTIONS (2)
  - Dysgeusia [Recovering/Resolving]
  - Angular cheilitis [Recovering/Resolving]

NARRATIVE: CASE EVENT DATE: 20130216
